FAERS Safety Report 11584957 (Version 2)
Quarter: 2015Q4

REPORT INFORMATION
  Report Type: Spontaneous
  Country: US (occurrence: US)
  Receive Date: 20151001
  Receipt Date: 20151029
  Transmission Date: 20160304
  Serious: Yes (Death, Other)
  Sender: FDA-Public Use
  Company Number: US-GLAXOSMITHKLINE-US2015GSK139457

PATIENT
  Sex: Female

DRUGS (1)
  1. LAMICTAL [Suspect]
     Active Substance: LAMOTRIGINE
     Indication: MENTAL DISORDER
     Route: 065

REACTIONS (18)
  - Liver function test abnormal [Unknown]
  - Underweight [Unknown]
  - Alcoholism [Unknown]
  - Hepatitis viral [Unknown]
  - High risk pregnancy [Unknown]
  - Alcohol abuse [Unknown]
  - Post-traumatic stress disorder [Unknown]
  - Dental caries [Unknown]
  - Major depression [Unknown]
  - Drug dependence [Unknown]
  - Back pain [Unknown]
  - Death [Fatal]
  - Attention deficit/hyperactivity disorder [Unknown]
  - Affective disorder [Unknown]
  - Exposure during pregnancy [Unknown]
  - Dependence [Unknown]
  - General physical health deterioration [Unknown]
  - Mania [Unknown]
